FAERS Safety Report 20706224 (Version 1)
Quarter: 2022Q2

REPORT INFORMATION
  Report Type: Spontaneous
  Country: RS (occurrence: RS)
  Receive Date: 20220413
  Receipt Date: 20220413
  Transmission Date: 20220720
  Serious: Yes (Hospitalization)
  Sender: FDA-Public Use
  Company Number: RS-NOVARTISPH-NVSC2022RS082431

PATIENT
  Age: 66 Year
  Sex: Female

DRUGS (15)
  1. RITUXIMAB [Suspect]
     Active Substance: RITUXIMAB
     Indication: Chronic lymphocytic leukaemia
     Dosage: 375 MG/M2 (1ST CYCLE) (ON DAY 1)
     Route: 042
     Dates: start: 20210310
  2. RITUXIMAB [Suspect]
     Active Substance: RITUXIMAB
     Dosage: 500 MG/M2 (IN 2ND CYCLE) (ON DAY 1)
     Route: 042
     Dates: start: 20210420
  3. RITUXIMAB [Suspect]
     Active Substance: RITUXIMAB
     Dosage: 500 MG/M2 (THIRD CYCLE) (ON DAY 1)
     Route: 042
     Dates: start: 20210526
  4. RITUXIMAB [Suspect]
     Active Substance: RITUXIMAB
     Dosage: 500 MG/M2 (4TH CYCLE) (ON DAY 1)
     Route: 042
     Dates: start: 20210623
  5. RITUXIMAB [Suspect]
     Active Substance: RITUXIMAB
     Dosage: 500 MG/M2 (5TH CYCLE) (ON DAY 1)
     Route: 042
     Dates: start: 20210720
  6. FLUDARABINE [Suspect]
     Active Substance: FLUDARABINE PHOSPHATE
     Indication: Chronic lymphocytic leukaemia
     Dosage: 25 MG/M2 (FIRST CYCLE) (ON DAYS 1,2,3)
     Route: 042
     Dates: start: 20210310
  7. FLUDARABINE [Suspect]
     Active Substance: FLUDARABINE PHOSPHATE
     Dosage: 25 MG/M2 (SECOND CYCLE) (ON DAYS 1,2,3)
     Route: 042
     Dates: start: 20210420
  8. FLUDARABINE [Suspect]
     Active Substance: FLUDARABINE PHOSPHATE
     Dosage: 25 MG/M2 (THIRD CYCLE) (ON DAYS 1,2,3)
     Route: 042
     Dates: start: 20210526
  9. FLUDARABINE [Suspect]
     Active Substance: FLUDARABINE PHOSPHATE
     Dosage: 25 MG/M2 (FOURTH CYCLE) (ON DAYS 1,2,3)
     Route: 042
     Dates: start: 20210623
  10. FLUDARABINE [Suspect]
     Active Substance: FLUDARABINE PHOSPHATE
     Dosage: 25 MG/M2 (FIFTH CYCLE) (ON DAYS 1,2,3)
     Route: 042
     Dates: start: 20210720
  11. CYCLOPHOSPHAMIDE [Concomitant]
     Active Substance: CYCLOPHOSPHAMIDE
     Indication: Chronic lymphocytic leukaemia
     Dosage: 250 MG/M2 (FIRST CYCLE) (ON DAYS 1,2,3)
     Route: 042
     Dates: start: 20210310
  12. CYCLOPHOSPHAMIDE [Concomitant]
     Active Substance: CYCLOPHOSPHAMIDE
     Dosage: 250 MG/M2 (SECOND CYCLE) (ON DAYS 1,2,3)
     Route: 042
     Dates: start: 20210420
  13. CYCLOPHOSPHAMIDE [Concomitant]
     Active Substance: CYCLOPHOSPHAMIDE
     Dosage: 250 MG/M2 (THIRD CYCLE) (ON DAYS 1,2,3)
     Route: 042
     Dates: start: 20210526
  14. CYCLOPHOSPHAMIDE [Concomitant]
     Active Substance: CYCLOPHOSPHAMIDE
     Dosage: 250 MG/M2 (FOURTH CYCLE) (ON DAYS 1,2,3)
     Route: 042
     Dates: start: 20210623
  15. CYCLOPHOSPHAMIDE [Concomitant]
     Active Substance: CYCLOPHOSPHAMIDE
     Dosage: 250 MG/M2 (FIFTH CYCLE) (ON DAYS 1,2,3)
     Route: 042
     Dates: start: 20210720

REACTIONS (1)
  - Bone marrow failure [Unknown]

NARRATIVE: CASE EVENT DATE: 20210730
